FAERS Safety Report 15075451 (Version 2)
Quarter: 2023Q4

REPORT INFORMATION
  Report Type: Report from Study
  Country: US (occurrence: US)
  Receive Date: 20180627
  Receipt Date: 20231128
  Transmission Date: 20240110
  Serious: No
  Sender: FDA-Public Use
  Company Number: US-SAOL THERAPEUTICS-2018SAO00646

PATIENT
  Age: 51 Year
  Sex: Female

DRUGS (13)
  1. BACLOFEN [Suspect]
     Active Substance: BACLOFEN
     Dosage: 49.93 ?G, \DAY
     Route: 037
     Dates: start: 20180220, end: 20180405
  2. BACLOFEN [Suspect]
     Active Substance: BACLOFEN
     Dosage: 81.40 ?G, \DAY - MAX
     Dates: start: 20180220, end: 20180405
  3. BACLOFEN [Suspect]
     Active Substance: BACLOFEN
     Dosage: 60.04 ?G, \DAY
     Dates: start: 20180405
  4. BACLOFEN [Suspect]
     Active Substance: BACLOFEN
     Dosage: 91.40 ?G, \DAY - MAX
     Dates: start: 20180405
  5. DILAUDID [Suspect]
     Active Substance: HYDROMORPHONE HYDROCHLORIDE
     Dosage: 0.4993 MG, \DAY
     Route: 037
     Dates: start: 20180220
  6. DILAUDID [Suspect]
     Active Substance: HYDROMORPHONE HYDROCHLORIDE
     Dosage: 0.8140 MG, \DAY - MAX
     Route: 037
     Dates: start: 20180220, end: 20180405
  7. DILAUDID [Suspect]
     Active Substance: HYDROMORPHONE HYDROCHLORIDE
     Dosage: 0.6004 MG, \DAY
     Route: 037
     Dates: start: 20180405
  8. DILAUDID [Suspect]
     Active Substance: HYDROMORPHONE HYDROCHLORIDE
     Dosage: 0.9140 MG, \DAY - MAX
     Route: 037
     Dates: start: 20180405
  9. BUPIVACAINE [Suspect]
     Active Substance: BUPIVACAINE
     Dosage: 9.987 MG, \DAY
     Route: 037
     Dates: start: 20180220, end: 20180405
  10. BUPIVACAINE [Suspect]
     Active Substance: BUPIVACAINE
     Dosage: 16.280 MG, \DAY - MAX
     Route: 037
     Dates: start: 20180220, end: 20180405
  11. BUPIVACAINE [Suspect]
     Active Substance: BUPIVACAINE
     Dosage: 12.008 MG, \DAY
     Route: 037
     Dates: start: 20180405
  12. BUPIVACAINE [Suspect]
     Active Substance: BUPIVACAINE
     Dosage: 18.280 MG, \DAY - MAX
     Route: 037
     Dates: start: 20180405
  13. BUPIVACAINE [Suspect]
     Active Substance: BUPIVACAINE
     Dosage: UNK

REACTIONS (3)
  - Impaired healing [Recovered/Resolved]
  - Balance disorder [Not Recovered/Not Resolved]
  - Wound complication [Recovered/Resolved]

NARRATIVE: CASE EVENT DATE: 20180405
